FAERS Safety Report 10626586 (Version 1)
Quarter: 2014Q4

REPORT INFORMATION
  Report Type: Spontaneous
  Country: US (occurrence: US)
  Receive Date: 20141204
  Receipt Date: 20141204
  Transmission Date: 20150529
  Serious: No
  Sender: FDA-Public Use
  Company Number: US-009507513-1412USA002317

PATIENT
  Sex: Female

DRUGS (1)
  1. LOTRIMIN ULTRA [Suspect]
     Active Substance: BUTENAFINE HYDROCHLORIDE
     Indication: SKIN INFECTION
     Dosage: UNK, UNKNOWN
     Route: 061

REACTIONS (3)
  - Drug prescribing error [Unknown]
  - Drug ineffective for unapproved indication [Unknown]
  - Off label use [Unknown]
